APPROVED DRUG PRODUCT: SULMEPRIM
Active Ingredient: SULFAMETHOXAZOLE; TRIMETHOPRIM
Strength: 200MG/5ML;40MG/5ML
Dosage Form/Route: SUSPENSION;ORAL
Application: A070063 | Product #001
Applicant: USL PHARMA INC
Approved: Aug 1, 1986 | RLD: No | RS: No | Type: DISCN